FAERS Safety Report 4307556-8 (Version None)
Quarter: 2004Q1

REPORT INFORMATION
  Report Type: 
  Country: None (occurrence: None)
  Receive Date: 20040227
  Receipt Date: 20040227
  Transmission Date: 20041129
  Serious: No
  Sender: FDA-Public Use
  Company Number: None

PATIENT
  Sex: Female

DRUGS (8)
  1. SOMAVERT [Suspect]
     Indication: ACROMEGALY
     Dosage: 10 MG DAILY SUBSCUTANEOUS
     Route: 058
     Dates: start: 20040122, end: 20040207
  2. PREMARIN [Concomitant]
  3. LEVOXYL [Concomitant]
  4. PRILOSEC [Concomitant]
  5. WELLBUTRIN [Concomitant]
  6. ZOLOFT [Concomitant]
  7. SANDOSTATIN [Concomitant]
  8. LAR DEPOT [Concomitant]

REACTIONS (5)
  - FATIGUE [None]
  - INJECTION SITE ERYTHEMA [None]
  - INJECTION SITE PRURITUS [None]
  - INJECTION SITE REACTION [None]
  - INJECTION SITE WARMTH [None]
